FAERS Safety Report 9179116 (Version 3)
Quarter: 2013Q3

REPORT INFORMATION
  Report Type: Spontaneous
  Country: US (occurrence: US)
  Receive Date: 20130321
  Receipt Date: 20130802
  Transmission Date: 20140515
  Serious: Yes (Hospitalization)
  Sender: FDA-Public Use
  Company Number: US-BAXTER-2013BAX005877

PATIENT
  Age: 47 Year
  Sex: Female

DRUGS (3)
  1. DIANEAL LOW CALCIUM [Suspect]
     Indication: PERITONEAL DIALYSIS
     Route: 033
  2. DIANEAL LOW CALCIUM [Suspect]
     Indication: PERITONEAL DIALYSIS
     Route: 033
  3. DIANEAL LOW CALCIUM (ULTRABAG) [Suspect]
     Indication: PERITONEAL DIALYSIS
     Route: 033

REACTIONS (11)
  - Bronchitis [Recovering/Resolving]
  - Skeletal injury [Recovering/Resolving]
  - Respiratory tract infection [Unknown]
  - Respiratory tract congestion [Unknown]
  - Wrong drug administered [Recovered/Resolved]
  - Weight decreased [Recovered/Resolved]
  - Bipolar disorder [Unknown]
  - Drug dose omission [Unknown]
  - Malaise [Unknown]
  - Dehydration [Recovered/Resolved]
  - Muscle spasms [Recovered/Resolved]
